FAERS Safety Report 21276083 (Version 1)
Quarter: 2022Q3

REPORT INFORMATION
  Report Type: Spontaneous
  Country: US (occurrence: US)
  Receive Date: 20220831
  Receipt Date: 20220831
  Transmission Date: 20221027
  Serious: No
  Sender: FDA-Public Use
  Company Number: US-ABBVIE-22K-163-4383414-00

PATIENT
  Age: 29 Year
  Sex: Female
  Weight: 66.738 kg

DRUGS (4)
  1. HUMIRA [Suspect]
     Active Substance: ADALIMUMAB
     Indication: Crohn^s disease
     Route: 058
     Dates: start: 201912
  2. HUMIRA [Suspect]
     Active Substance: ADALIMUMAB
     Route: 058
     Dates: start: 20220504
  3. HUMIRA [Suspect]
     Active Substance: ADALIMUMAB
     Route: 058
  4. VALIUM [Concomitant]
     Active Substance: DIAZEPAM
     Indication: Product used for unknown indication

REACTIONS (8)
  - Pallor [Recovered/Resolved]
  - Erythema [Recovered/Resolved]
  - Gait inability [Unknown]
  - Abdominal pain upper [Recovered/Resolved]
  - Vomiting [Recovered/Resolved]
  - Presyncope [Recovered/Resolved]
  - Wrong technique in product usage process [Unknown]
  - Device issue [Unknown]

NARRATIVE: CASE EVENT DATE: 20220428
